FAERS Safety Report 6090908-6 (Version None)
Quarter: 2009Q1

REPORT INFORMATION
  Report Type: 
  Country: None (occurrence: None)
  Receive Date: 20090220
  Receipt Date: 20090212
  Transmission Date: 20090719
  Serious: Yes (Other)
  Sender: FDA-Public Use
  Company Number: 2009SP001538

PATIENT
  Age: 53 Year
  Sex: Female
  Weight: 75.5 kg

DRUGS (6)
  1. POSACONAZOLE [Suspect]
     Indication: ACUTE MYELOID LEUKAEMIA
     Dosage: 5 ML; TID; PO
     Route: 048
     Dates: start: 20090110, end: 20090121
  2. TINIDAZOLE          (TINIDAZOLE) [Suspect]
     Indication: ANTI-INFECTIVE THERAPY
     Dosage: 0.5 GM; QD; PO
     Route: 048
     Dates: start: 20090116, end: 20090123
  3. CEFTAZIDIME [Suspect]
     Indication: ANTI-INFECTIVE THERAPY
     Dosage: 2 GM; BID; IV
     Route: 042
     Dates: start: 20090116, end: 20090123
  4. CYTARABINE [Concomitant]
  5. MITOXANTRONE [Concomitant]
  6. ONDANSETRON [Concomitant]

REACTIONS (3)
  - EYELID OEDEMA [None]
  - FACE OEDEMA [None]
  - RASH PRURITIC [None]
